FAERS Safety Report 13390435 (Version 4)
Quarter: 2017Q2

REPORT INFORMATION
  Report Type: Spontaneous
  Country: US (occurrence: US)
  Receive Date: 20170331
  Receipt Date: 20170608
  Transmission Date: 20170830
  Serious: Yes (Hospitalization)
  Sender: FDA-Public Use
  Company Number: US-PFIZER INC-2017133204

PATIENT
  Age: 68 Year
  Sex: Male
  Weight: 58.97 kg

DRUGS (9)
  1. LYRICA [Suspect]
     Active Substance: PREGABALIN
     Dosage: 1 TABLET EVERY 6 HRS
  2. METFORMIN [Concomitant]
     Active Substance: METFORMIN HYDROCHLORIDE
     Indication: BLOOD GLUCOSE INCREASED
     Dosage: 1000 MG, 1X/DAY (ONLY TOOK ON THE DAYS THAT HE TOOK THE DEXAMETHASONE)
  3. TYLENOL [Concomitant]
     Active Substance: ACETAMINOPHEN
     Dosage: UNK, 1X/DAY (PER NIGHT)
  4. REVLIMID [Concomitant]
     Active Substance: LENALIDOMIDE
     Indication: PLASMA CELL MYELOMA
     Dosage: 25 MG, 1X/DAY 3 WEEKS ON, THEN 1 WEEK OFF
  5. PLAVIX [Concomitant]
     Active Substance: CLOPIDOGREL BISULFATE
     Indication: STENT PLACEMENT
     Dosage: 75 MG, 1X/DAY
     Dates: start: 20170210
  6. LYRICA [Suspect]
     Active Substance: PREGABALIN
     Indication: POST HERPETIC NEURALGIA
     Dosage: 75 MG, UNK (EVERY 6-8 HOURS)
     Dates: start: 20170306
  7. DEXAMETHASONE. [Concomitant]
     Active Substance: DEXAMETHASONE
     Indication: PLASMA CELL MYELOMA
     Dosage: 20 MG, CYCLIC (ONCE A DAY, FOR 4 DAYS EACH CYCLE)(EACH CYCLE, WHICH IS 3 WEEKS ON, THEN 1 WEEK OFF)
  8. LYRICA [Suspect]
     Active Substance: PREGABALIN
     Dosage: 300 MG, DAILY
     Dates: start: 20170306
  9. OXYCODONE [Suspect]
     Active Substance: OXYCODONE
     Indication: POST HERPETIC NEURALGIA
     Dosage: (5MG/325MG), 1 EVERY 6 HOURS AS NEEDED
     Route: 048

REACTIONS (6)
  - Intentional product misuse [Unknown]
  - Pain [Not Recovered/Not Resolved]
  - Hypoaesthesia [Unknown]
  - Musculoskeletal stiffness [Unknown]
  - Hyperaesthesia [Unknown]
  - Condition aggravated [Not Recovered/Not Resolved]
